FAERS Safety Report 11922232 (Version 1)
Quarter: 2016Q1

REPORT INFORMATION
  Report Type: Report from Study
  Country: US (occurrence: US)
  Receive Date: 20160115
  Receipt Date: 20160115
  Transmission Date: 20160526
  Serious: Yes (Hospitalization)
  Sender: FDA-Public Use
  Company Number: US-ACTELION-A-US2016-129750

PATIENT
  Age: 24 Year
  Sex: Female

DRUGS (5)
  1. MACITENTAN [Suspect]
     Active Substance: MACITENTAN
     Indication: PULMONARY ARTERIAL HYPERTENSION
     Dosage: 10 MG, QD
     Route: 048
     Dates: start: 20151202, end: 20151231
  2. CARVEDILOL. [Concomitant]
     Active Substance: CARVEDILOL
  3. KLOR-CON [Concomitant]
     Active Substance: POTASSIUM CHLORIDE
  4. TORSEMIDE. [Concomitant]
     Active Substance: TORSEMIDE
  5. ALLOPURINOL. [Concomitant]
     Active Substance: ALLOPURINOL

REACTIONS (3)
  - Pneumonia [Recovered/Resolved]
  - Pulmonary oedema [Recovered/Resolved]
  - Fatigue [Recovered/Resolved]

NARRATIVE: CASE EVENT DATE: 20151231
